FAERS Safety Report 5844027-1 (Version None)
Quarter: 2008Q3

REPORT INFORMATION
  Report Type: 
  Country: None (occurrence: None)
  Receive Date: 20080731
  Receipt Date: 20080616
  Transmission Date: 20090109
  Serious: No
  Sender: FDA-Public Use
  Company Number: US200804006272

PATIENT
  Age: 49 Year
  Sex: Female
  Weight: 60.8 kg

DRUGS (7)
  1. BYETTA [Suspect]
     Indication: INSULIN-REQUIRING TYPE 2 DIABETES MELLITUS
     Dosage: 5 UG, SUBCUTANEOUS; 10 UG, 2/D, SUBCUTANEOUS; 10 UG, SUBCUTANEOUS
     Route: 058
     Dates: end: 20080101
  2. BYETTA [Suspect]
     Indication: INSULIN-REQUIRING TYPE 2 DIABETES MELLITUS
     Dosage: 5 UG, SUBCUTANEOUS; 10 UG, 2/D, SUBCUTANEOUS; 10 UG, SUBCUTANEOUS
     Route: 058
     Dates: start: 20080301, end: 20080401
  3. BYETTA [Suspect]
     Indication: INSULIN-REQUIRING TYPE 2 DIABETES MELLITUS
     Dosage: 5 UG, SUBCUTANEOUS; 10 UG, 2/D, SUBCUTANEOUS; 10 UG, SUBCUTANEOUS
     Route: 058
     Dates: start: 20080401
  4. BYETTA [Suspect]
  5. EXENATIDE PEN, DISPOSABLE DEVICE (EXENATIDE PEN) PEN,DISPOSABLE [Concomitant]
  6. HUMALOG [Concomitant]
  7. DRUG USED IN DIABETES [Concomitant]

REACTIONS (7)
  - BLOOD GLUCOSE INCREASED [None]
  - DECREASED APPETITE [None]
  - HUNGER [None]
  - MALAISE [None]
  - NAUSEA [None]
  - VOMITING [None]
  - WEIGHT DECREASED [None]
